FAERS Safety Report 16457813 (Version 2)
Quarter: 2019Q2

REPORT INFORMATION
  Report Type: Spontaneous
  Country: US (occurrence: US)
  Receive Date: 20190620
  Receipt Date: 20190628
  Transmission Date: 20190711
  Serious: No
  Sender: FDA-Public Use
  Company Number: US-PFIZER INC-2019257781

PATIENT
  Age: 54 Year
  Sex: Female
  Weight: 55.79 kg

DRUGS (2)
  1. LYRICA [Suspect]
     Active Substance: PREGABALIN
     Indication: NEUROPATHY PERIPHERAL
     Dosage: 475 MG, DAILY (200MG TWICE DAILY WITH A 75MG DOSE MIDDAY)
     Dates: start: 201810, end: 20190617
  2. LYRICA [Suspect]
     Active Substance: PREGABALIN
     Indication: NEURALGIA
     Dosage: 200 MG, 2X/DAY

REACTIONS (1)
  - Nausea [Unknown]
